FAERS Safety Report 4824559-5 (Version None)
Quarter: 2005Q4

REPORT INFORMATION
  Report Type: 
  Country: None (occurrence: None)
  Receive Date: 20051108
  Receipt Date: 20050908
  Transmission Date: 20060501
  Serious: Yes (Hospitalization)
  Sender: FDA-Public Use
  Company Number: 200509580

PATIENT
  Age: 64 Year
  Sex: Female

DRUGS (3)
  1. ALESION (EPINASTINE) [Suspect]
     Indication: SEASONAL ALLERGY
     Dosage: MG
     Dates: start: 20050307, end: 20050412
  2. NIKORANMARK [Concomitant]
  3. LIPITOR [Concomitant]

REACTIONS (1)
  - JAUNDICE [None]
